FAERS Safety Report 8951368 (Version 2)
Quarter: 2013Q1

REPORT INFORMATION
  Report Type: Spontaneous
  Country: US (occurrence: US)
  Receive Date: 20121207
  Receipt Date: 20130213
  Transmission Date: 20140127
  Serious: Yes (Other)
  Sender: FDA-Public Use
  Company Number: US-JNJFOC-20121200142

PATIENT
  Sex: Female

DRUGS (2)
  1. DOXORUBICIN [Suspect]
     Indication: OVARIAN EPITHELIAL CANCER
     Route: 042
  2. BEVACIZUMAB [Suspect]
     Indication: OVARIAN EPITHELIAL CANCER
     Dosage: (BEGINNING ON CYCLE 2) EVERY 3 WEEKS
     Route: 065

REACTIONS (45)
  - Asthenia [Unknown]
  - Tooth abscess [Unknown]
  - Blister [Recovered/Resolved]
  - Mucosal inflammation [Recovered/Resolved]
  - Palmar-plantar erythrodysaesthesia syndrome [Recovered/Resolved]
  - Ulcer [Recovered/Resolved]
  - Rash pruritic [Unknown]
  - Hypertension [Unknown]
  - Headache [Unknown]
  - Nausea [Unknown]
  - Dyspnoea [Unknown]
  - Cough [Unknown]
  - Hyponatraemia [Unknown]
  - Infection [Unknown]
  - Pyrexia [Unknown]
  - Dry skin [Unknown]
  - Neutropenia [Unknown]
  - Anaemia [Unknown]
  - Thrombocytopenia [Unknown]
  - Gastrointestinal disorder [Unknown]
  - Skin disorder [Unknown]
  - Peripheral sensory neuropathy [Recovered/Resolved]
  - Infusion related reaction [Unknown]
  - Epistaxis [Unknown]
  - Skin hyperpigmentation [Unknown]
  - Ejection fraction decreased [Recovered/Resolved]
  - Decreased appetite [Unknown]
  - Vomiting [Unknown]
  - Renal impairment [Unknown]
  - Diarrhoea [Unknown]
  - Pain [Unknown]
  - Hypokalaemia [Unknown]
  - Hyperglycaemia [Unknown]
  - Nervous system disorder [Unknown]
  - Gait disturbance [Unknown]
  - Muscular weakness [Unknown]
  - Cognitive disorder [Unknown]
  - Myalgia [Unknown]
  - Dysphonia [Unknown]
  - Proteinuria [Unknown]
  - Hypocalcaemia [Unknown]
  - Dry eye [Unknown]
  - Vision blurred [Unknown]
  - Dizziness [Unknown]
  - Dehydration [Unknown]
